FAERS Safety Report 5694923-3 (Version None)
Quarter: 2008Q2

REPORT INFORMATION
  Report Type: 
  Country: None (occurrence: None)
  Receive Date: 20080404
  Receipt Date: 20080303
  Transmission Date: 20081010
  Serious: Yes (Death, Life-Threatening, Hospitalization)
  Sender: FDA-Public Use
  Company Number: JP-ROCHE-547167

PATIENT
  Sex: Male
  Weight: 47.3 kg

DRUGS (8)
  1. CAPECITABINE [Suspect]
     Dosage: FREQUENCY REPORTED AS D1-14 EVERY 3 WEEKS
     Route: 048
     Dates: start: 20070828, end: 20071114
  2. TRASTUZUMAB [Suspect]
     Dosage: DOSAGE FROM REPORTED AS INFUSION
     Route: 042
     Dates: start: 20070828, end: 20071031
  3. CISPLATIN [Suspect]
     Route: 042
     Dates: start: 20070828, end: 20071031
  4. PACLITAXEL [Suspect]
     Indication: DRUG USE FOR UNKNOWN INDICATION
     Route: 065
     Dates: start: 20080108, end: 20080122
  5. IRINOTECAN HCL [Suspect]
     Indication: DRUG USE FOR UNKNOWN INDICATION
     Route: 065
     Dates: start: 20071128, end: 20071214
  6. RABEPRAZOLE SODIUM [Concomitant]
     Dosage: REPORTED AS 'SODIUM RABEPRAZOLE'.
     Dates: start: 20071023, end: 20080208
  7. MORPHINE [Concomitant]
     Dosage: DRUG REPORTED AS 'MORPHINE HCL'.
     Dates: start: 20080110, end: 20080129
  8. FUROSEMIDE [Concomitant]
     Dates: start: 20080107, end: 20080129

REACTIONS (2)
  - ANGINA UNSTABLE [None]
  - CARDIAC FAILURE [None]
